FAERS Safety Report 7542388-9 (Version None)
Quarter: 2011Q2

REPORT INFORMATION
  Report Type: 
  Country: None (occurrence: None)
  Receive Date: 20110613
  Receipt Date: 20110603
  Transmission Date: 20111010
  Serious: Yes (Hospitalization, Other)
  Sender: FDA-Public Use
  Company Number: GB-MPIJNJ-2010-04206

PATIENT

DRUGS (3)
  1. DEXAMETHASONE [Suspect]
     Indication: MULTIPLE MYELOMA
     Dosage: 40 MG, UNK
     Route: 048
     Dates: start: 20100614, end: 20100729
  2. DOXORUBICIN HCL [Suspect]
     Indication: MULTIPLE MYELOMA
     Dosage: 68 MG, UNK
     Route: 042
     Dates: start: 20100614, end: 20100726
  3. VELCADE [Suspect]
     Indication: MULTIPLE MYELOMA
     Dosage: 2.5 MG, UNK
     Route: 042
     Dates: start: 20100614, end: 20100729

REACTIONS (4)
  - STEROID WITHDRAWAL SYNDROME [None]
  - CONSTIPATION [None]
  - MALAISE [None]
  - NEUROPATHY PERIPHERAL [None]
